FAERS Safety Report 23879572 (Version 1)
Quarter: 2024Q2

REPORT INFORMATION
  Report Type: Spontaneous
  Country: CN (occurrence: CN)
  Receive Date: 20240521
  Receipt Date: 20240521
  Transmission Date: 20240716
  Serious: Yes (Disabling, Other)
  Sender: FDA-Public Use
  Company Number: CN-GLAXOSMITHKLINE-CN2024APC062036

PATIENT

DRUGS (2)
  1. LAMICTAL [Suspect]
     Active Substance: LAMOTRIGINE
     Indication: Affective disorder
     Dosage: 25 MG, BID
     Dates: start: 20240409, end: 20240428
  2. QUETIAPINE [Suspect]
     Active Substance: QUETIAPINE
     Indication: Affective disorder
     Dosage: 0.2 G, QD
     Dates: start: 20240312, end: 20240514

REACTIONS (2)
  - Physical disability [Unknown]
  - Rash [Unknown]

NARRATIVE: CASE EVENT DATE: 20240417
